FAERS Safety Report 9057585 (Version 3)
Quarter: 2013Q1

REPORT INFORMATION
  Report Type: Spontaneous
  Country: US (occurrence: US)
  Receive Date: 20130204
  Receipt Date: 20130227
  Transmission Date: 20140127
  Serious: Yes (Hospitalization, Other)
  Sender: FDA-Public Use
  Company Number: US-PFIZER INC-2013039770

PATIENT
  Age: 84 Year
  Sex: Male
  Weight: 72.56 kg

DRUGS (10)
  1. REVATIO [Suspect]
     Indication: PULMONARY HYPERTENSION
     Dosage: 40 MG, 3X/DAY
  2. REVATIO [Suspect]
     Dosage: 20 MG, 3X/DAY
  3. PRIMIDONE [Concomitant]
     Dosage: 100 MG, 3X/DAY
  4. SPIRONOLACTONE [Concomitant]
     Dosage: 25 MG, DAILY
  5. FUROSEMIDE [Concomitant]
     Dosage: 20 MG, DAILY
  6. POTASSIUM [Concomitant]
     Dosage: 20 MG, ALTERNATE DAY
  7. PANTOPRAZOLE [Concomitant]
     Dosage: 40 MG, DAILY
  8. DIGOXIN [Concomitant]
     Dosage: 250 MG, DAILY
  9. DILTIAZEM [Concomitant]
     Indication: CARDIAC DISORDER
     Dosage: 300 MG, UNK
  10. WARFARIN [Concomitant]
     Indication: CARDIAC DISORDER
     Dosage: 9 MG, DAILY

REACTIONS (4)
  - Gastrointestinal disorder [Unknown]
  - Dyspnoea [Unknown]
  - Blood pressure increased [Unknown]
  - Off label use [Unknown]
